FAERS Safety Report 9611830 (Version 1)
Quarter: 2013Q4

REPORT INFORMATION
  Report Type: Spontaneous
  Country: GB (occurrence: GB)
  Receive Date: 20131010
  Receipt Date: 20131010
  Transmission Date: 20140711
  Serious: Yes (Life-Threatening)
  Sender: FDA-Public Use
  Company Number: GB-JNJFOC-20131005197

PATIENT
  Age: 50 Year
  Sex: Male

DRUGS (13)
  1. XARELTO [Suspect]
     Indication: THROMBOSIS PROPHYLAXIS
     Route: 048
  2. XARELTO [Suspect]
     Indication: PULMONARY EMBOLISM
     Route: 048
  3. CLOPIDOGREL [Suspect]
     Indication: CARDIOVASCULAR DISORDER
     Route: 048
  4. FLUOXETINE [Concomitant]
     Route: 065
  5. ISOSORBIDE MONONITRATE [Concomitant]
     Route: 065
  6. VITAMIN B [Concomitant]
     Route: 065
  7. NOVOMIX [Concomitant]
     Route: 065
  8. RAMIPRIL [Concomitant]
     Route: 065
  9. RISEDRONATE SODIUM [Concomitant]
     Route: 065
  10. THIAMINE [Concomitant]
     Route: 065
  11. CALCEOS [Concomitant]
     Route: 065
  12. BISOPROLOL [Concomitant]
     Route: 065
  13. NICORANDIL [Concomitant]
     Route: 065

REACTIONS (3)
  - Cerebral haemorrhage [Not Recovered/Not Resolved]
  - Convulsion [Not Recovered/Not Resolved]
  - Vomiting [Not Recovered/Not Resolved]
